FAERS Safety Report 4883717-4 (Version None)
Quarter: 2006Q1

REPORT INFORMATION
  Report Type: 
  Country: None (occurrence: None)
  Receive Date: 20060118
  Receipt Date: 20051215
  Transmission Date: 20060701
  Serious: Yes (Other)
  Sender: FDA-Public Use
  Company Number: JP-BRISTOL-MYERS SQUIBB COMPANY-13226006

PATIENT
  Age: 75 Year
  Sex: Male
  Weight: 68 kg

DRUGS (3)
  1. UFT [Suspect]
     Indication: TONGUE NEOPLASM MALIGNANT STAGE UNSPECIFIED
     Route: 048
     Dates: start: 20030301
  2. CARBOPLATIN [Suspect]
     Indication: TONGUE NEOPLASM MALIGNANT STAGE UNSPECIFIED
     Route: 013
     Dates: start: 20030301
  3. RADIOTHERAPY [Concomitant]

REACTIONS (2)
  - BLADDER CANCER RECURRENT [None]
  - PAPILLARY THYROID CANCER [None]
